FAERS Safety Report 6596340-0 (Version None)
Quarter: 2010Q1

REPORT INFORMATION
  Report Type: 
  Country: None (occurrence: None)
  Receive Date: 20100223
  Receipt Date: 20100212
  Transmission Date: 20100710
  Serious: Yes (Hospitalization, Other)
  Sender: FDA-Public Use
  Company Number: US-ELI_LILLY_AND_COMPANY-US201002003625

PATIENT
  Sex: Female
  Weight: 101.59 kg

DRUGS (7)
  1. BYETTA [Suspect]
     Indication: TYPE 2 DIABETES MELLITUS
     Dosage: 5 UG, 2/D
     Dates: start: 20070101
  2. BYETTA [Suspect]
     Dosage: 10 UG, 2/D
  3. BYETTA [Suspect]
     Dosage: 10 UG, 2/D
     Dates: end: 20090801
  4. METFORMIN HCL [Concomitant]
     Indication: TYPE 2 DIABETES MELLITUS
     Dosage: 500 MG, 2/D
  5. AMARYL [Concomitant]
     Indication: TYPE 2 DIABETES MELLITUS
  6. LASIX [Concomitant]
     Indication: HYPERTENSION
  7. CLONIDINE [Concomitant]
     Indication: HYPERTENSION

REACTIONS (10)
  - BLOOD GLUCOSE FLUCTUATION [None]
  - FEELING ABNORMAL [None]
  - GASTROOESOPHAGEAL REFLUX DISEASE [None]
  - HAEMORRHAGE [None]
  - HEART RATE INCREASED [None]
  - LARGE INTESTINAL ULCER HAEMORRHAGE [None]
  - MUSCLE SPASMS [None]
  - RECTAL HAEMORRHAGE [None]
  - RETCHING [None]
  - WEIGHT DECREASED [None]
